FAERS Safety Report 4913996-6 (Version None)
Quarter: 2006Q1

REPORT INFORMATION
  Report Type: 
  Country: None (occurrence: None)
  Receive Date: 20060210
  Receipt Date: 20060202
  Transmission Date: 20060701
  Serious: Yes (Hospitalization)
  Sender: FDA-Public Use
  Company Number: 2006BI001995

PATIENT
  Age: 45 Year
  Sex: Female
  Weight: 56.6996 kg

DRUGS (6)
  1. AVONEX [Suspect]
     Indication: MULTIPLE SCLEROSIS
     Dosage: 30 UG; QW; IM
     Route: 030
     Dates: start: 19970101
  2. AVONEX [Suspect]
     Indication: MULTIPLE SCLEROSIS
     Dosage: 30 UG; QW; IM
     Route: 030
  3. ASCORBIC ACID [Concomitant]
  4. CALCIUM GLUCONATE [Concomitant]
  5. FLAX SEED OIL [Concomitant]
  6. MULTI-VITAMIN [Concomitant]

REACTIONS (7)
  - BREAST CANCER [None]
  - CONDITION AGGRAVATED [None]
  - CYSTITIS [None]
  - DEPRESSION [None]
  - MOOD SWINGS [None]
  - MULTIPLE SCLEROSIS [None]
  - URINARY INCONTINENCE [None]
